FAERS Safety Report 24618567 (Version 1)
Quarter: 2024Q4

REPORT INFORMATION
  Report Type: Spontaneous
  Country: US (occurrence: None)
  Receive Date: 20241113
  Receipt Date: 20241113
  Transmission Date: 20250115
  Serious: Yes (Death)
  Sender: Public
  Company Number: None

PATIENT
  Age: 82 Year
  Sex: Female

DRUGS (11)
  1. COLLAGENASE SANTYL [Suspect]
     Active Substance: COLLAGENASE CLOSTRIDIUM HISTOLYTICUM
     Indication: Wound
     Dosage: 250 UNIT/GRAM GM DAILY TOPICAL?
     Route: 061
     Dates: start: 20240925, end: 202411
  2. MORPHINE SULFATE [Concomitant]
     Active Substance: MORPHINE SULFATE
  3. GABAPENTIN [Concomitant]
     Active Substance: GABAPENTIN
  4. OXYCODONE [Concomitant]
     Active Substance: OXYCODONE
  5. COLESTIPOL [Concomitant]
     Active Substance: COLESTIPOL
  6. ELIQUIS [Concomitant]
     Active Substance: APIXABAN
  7. TRAZODONE [Concomitant]
     Active Substance: TRAZODONE HYDROCHLORIDE
  8. TEMAZEPAM [Concomitant]
     Active Substance: TEMAZEPAM
  9. MAGNESIUM OXIDE [Concomitant]
     Active Substance: MAGNESIUM OXIDE
  10. OXCARBAZEPINE [Concomitant]
     Active Substance: OXCARBAZEPINE
  11. ATORVASTATIN [Concomitant]
     Active Substance: ATORVASTATIN

REACTIONS (1)
  - Death [None]

NARRATIVE: CASE EVENT DATE: 20241101
